FAERS Safety Report 7250063-3 (Version None)
Quarter: 2011Q1

REPORT INFORMATION
  Report Type: 
  Country: None (occurrence: None)
  Receive Date: 20110128
  Receipt Date: 20101217
  Transmission Date: 20110831
  Serious: Yes (Hospitalization, Other)
  Sender: FDA-Public Use
  Company Number: US-BAYER-201031537NA

PATIENT
  Sex: Female
  Weight: 54 kg

DRUGS (3)
  1. EXCEDRIN (MIGRAINE) [Concomitant]
     Indication: MIGRAINE
  2. YAZ [Suspect]
     Indication: PREMENSTRUAL SYNDROME
  3. YAZ [Suspect]
     Indication: CONTRACEPTION
     Route: 048
     Dates: start: 20050101, end: 20080501

REACTIONS (4)
  - GAIT DISTURBANCE [None]
  - HEMIPLEGIA [None]
  - ISCHAEMIC STROKE [None]
  - HEMIPARESIS [None]
